FAERS Safety Report 19402212 (Version 1)
Quarter: 2021Q2

REPORT INFORMATION
  Report Type: Spontaneous
  Country: US (occurrence: US)
  Receive Date: 20210610
  Receipt Date: 20210610
  Transmission Date: 20210717
  Serious: No
  Sender: FDA-Public Use
  Company Number: US-COLLEGIUM PHARMACEUTICAL, INC.-2021CGM00119

PATIENT
  Age: 41 Year
  Sex: Female
  Weight: 119.27 kg

DRUGS (12)
  1. XTAMPZA ER [Suspect]
     Active Substance: OXYCODONE
     Indication: PAIN
     Dosage: 72 MG, 2X/DAY (EVERY 12 HOURS)
     Route: 048
     Dates: start: 20210130, end: 20210201
  2. KLONOPIN [Concomitant]
     Active Substance: CLONAZEPAM
     Dosage: 0.5 MG
  3. PEPCID [Concomitant]
     Active Substance: FAMOTIDINE
  4. PROAIR HFA [Concomitant]
     Active Substance: ALBUTEROL SULFATE
  5. LIDOCAINE. [Concomitant]
     Active Substance: LIDOCAINE
  6. CYCLOBENZAPRINE. [Concomitant]
     Active Substance: CYCLOBENZAPRINE
  7. AMLODIPINE/BENAZEPRIL [Concomitant]
     Active Substance: AMLODIPINE BESYLATE\BENAZEPRIL HYDROCHLORIDE
  8. PAXIL [Concomitant]
     Active Substance: PAROXETINE HYDROCHLORIDE
  9. OXYCODONE [Concomitant]
     Active Substance: OXYCODONE
  10. SYMBICORT [Concomitant]
     Active Substance: BUDESONIDE\FORMOTEROL FUMARATE DIHYDRATE
  11. ZALEPLON. [Concomitant]
     Active Substance: ZALEPLON
  12. SINGULAIR [Concomitant]
     Active Substance: MONTELUKAST SODIUM

REACTIONS (3)
  - Rash [Recovering/Resolving]
  - Lip swelling [Recovered/Resolved]
  - Product substitution issue [Recovered/Resolved]

NARRATIVE: CASE EVENT DATE: 202101
